FAERS Safety Report 6668713-9 (Version None)
Quarter: 2010Q2

REPORT INFORMATION
  Report Type: 
  Country: None (occurrence: None)
  Receive Date: 20100406
  Receipt Date: 20100319
  Transmission Date: 20101027
  Serious: No
  Sender: FDA-Public Use
  Company Number: US-ASTRAZENECA-2008UW04580

PATIENT
  Age: 774 Month
  Sex: Male

DRUGS (7)
  1. CRESTOR [Suspect]
     Indication: HYPERCHOLESTEROLAEMIA
     Route: 048
     Dates: start: 20070101, end: 20090301
  2. CRESTOR [Suspect]
     Route: 048
     Dates: start: 20090401
  3. METOPROLOL SUCCINATE [Concomitant]
  4. BENECAR [Concomitant]
  5. LORAZEPAM [Concomitant]
  6. LISINOPRIL [Concomitant]
  7. BYSTOLIC [Concomitant]

REACTIONS (7)
  - ASTHENIA [None]
  - BLOOD CHOLESTEROL INCREASED [None]
  - BLOOD CREATININE INCREASED [None]
  - FATIGUE [None]
  - MYALGIA [None]
  - NO ADVERSE EVENT [None]
  - TREMOR [None]
